FAERS Safety Report 8420829-2 (Version None)
Quarter: 2012Q2

REPORT INFORMATION
  Report Type: 
  Country: None (occurrence: None)
  Receive Date: 20120530
  Receipt Date: 20120515
  Transmission Date: 20120825
  Serious: Yes (Other)
  Sender: FDA-Public Use
  Company Number: TPA2012A03026

PATIENT
  Age: 67 Year
  Sex: Male

DRUGS (1)
  1. ADENURIC (FEBUXOSTAT) [Suspect]
     Indication: HYPERURICAEMIA
     Dosage: 80 MG (80 MG, 1 IN 1 D) ORAL
     Route: 048
     Dates: start: 20101214

REACTIONS (2)
  - BUNDLE BRANCH BLOCK [None]
  - ATRIOVENTRICULAR BLOCK COMPLETE [None]
